FAERS Safety Report 15356571 (Version 1)
Quarter: 2018Q3

REPORT INFORMATION
  Report Type: Spontaneous
  Country: TW (occurrence: TW)
  Receive Date: 20180906
  Receipt Date: 20180906
  Transmission Date: 20181010
  Serious: Yes (Hospitalization, Other)
  Sender: FDA-Public Use
  Company Number: TW-ALKEM LABORATORIES LIMITED-TW-ALKEM-2018-07294

PATIENT
  Age: 87 Year
  Sex: Female
  Weight: 68 kg

DRUGS (12)
  1. OXYGEN. [Concomitant]
     Active Substance: OXYGEN
     Indication: MAINTENANCE OF ANAESTHESIA
     Dosage: UNKNOWN
     Route: 065
  2. DESFLURANE. [Interacting]
     Active Substance: DESFLURANE
     Indication: MAINTENANCE OF ANAESTHESIA
     Dosage: UNKNOWN
     Route: 065
  3. SEVOFLURANE. [Interacting]
     Active Substance: SEVOFLURANE
     Indication: MAINTENANCE OF ANAESTHESIA
     Dosage: UNKNOWN
     Route: 065
  4. IMIPRAMINE [Interacting]
     Active Substance: IMIPRAMINE
     Indication: PANIC DISORDER
     Dosage: HS, LONG TERM TREATMENT
     Route: 065
  5. PROPRANOLOL [Concomitant]
     Active Substance: PROPRANOLOL HYDROCHLORIDE
     Indication: HYPERTENSION
     Dosage: HYPERTENSION WAS UNDER CONTROL WITH PROPRANOLOL 10 MG BID TREATMENT FOR 10 YEARS
     Route: 065
  6. LIDOCAINE. [Suspect]
     Active Substance: LIDOCAINE
     Indication: GENERAL ANAESTHESIA
     Dosage: 50 MG, IN TOTAL
     Route: 042
  7. FENTANYL. [Interacting]
     Active Substance: FENTANYL
     Indication: GENERAL ANAESTHESIA
     Dosage: 100 ?G, IN TOTAL
     Route: 042
  8. ESTAZOLAM. [Interacting]
     Active Substance: ESTAZOLAM
     Indication: MAJOR DEPRESSION
     Dosage: 2 MG, UNK
     Route: 065
  9. ALPRAZOLAM. [Interacting]
     Active Substance: ALPRAZOLAM
     Indication: PANIC DISORDER
     Dosage: 0.5 MG, BID
     Route: 065
  10. SEROQUEL [Interacting]
     Active Substance: QUETIAPINE FUMARATE
     Indication: MAJOR DEPRESSION
     Dosage: 50 MG, HS
     Route: 065
  11. PROPOFOL. [Interacting]
     Active Substance: PROPOFOL
     Indication: GENERAL ANAESTHESIA
     Dosage: 100 MG, IN TOTAL
     Route: 042
  12. CISATRACURIUM. [Interacting]
     Active Substance: CISATRACURIUM
     Indication: ENDOTRACHEAL INTUBATION
     Dosage: 10 MG, IN TOTAL
     Route: 042

REACTIONS (3)
  - Drug interaction [Recovered/Resolved]
  - Bradycardia [Recovered/Resolved]
  - Procedural hypotension [Recovered/Resolved]
